FAERS Safety Report 6391881-3 (Version None)
Quarter: 2009Q4

REPORT INFORMATION
  Report Type: 
  Country: None (occurrence: None)
  Receive Date: 20091007
  Receipt Date: 20090929
  Transmission Date: 20100525
  Serious: Yes (Other)
  Sender: FDA-Public Use
  Company Number: CA-AMGEN-QUU367035

PATIENT
  Age: 19 Year

DRUGS (1)
  1. ARANESP [Suspect]
     Indication: RENAL FAILURE CHRONIC
     Dates: start: 20090921

REACTIONS (3)
  - HYPERSENSITIVITY [None]
  - INJECTION SITE RASH [None]
  - URTICARIA [None]
